FAERS Safety Report 7746715-9 (Version None)
Quarter: 2011Q3

REPORT INFORMATION
  Report Type: 
  Country: None (occurrence: None)
  Receive Date: 20110907
  Receipt Date: 20110714
  Transmission Date: 20111222
  Serious: Yes (Other)
  Sender: FDA-Public Use
  Company Number: USA/USA/11/0019071

PATIENT
  Age: 75 Year
  Sex: Female
  Weight: 78.9259 kg

DRUGS (6)
  1. CLODERM [Suspect]
     Indication: DERMATITIS
     Dosage: ONE TIME ONLY, TOPICAL
     Route: 061
     Dates: start: 20110713
  2. LEVOTHYROXINE SODIUM [Concomitant]
  3. LORAZEPAM [Concomitant]
  4. AMLODIPINE BESYLATE [Concomitant]
  5. GLIMEPIRIDE [Concomitant]
  6. ASPIRIN [Concomitant]

REACTIONS (3)
  - NERVOUSNESS [None]
  - BLOOD PRESSURE INCREASED [None]
  - TREMOR [None]
